FAERS Safety Report 11786719 (Version 3)
Quarter: 2016Q2

REPORT INFORMATION
  Report Type: Report from Study
  Country: US (occurrence: US)
  Receive Date: 20151130
  Receipt Date: 20160520
  Transmission Date: 20160815
  Serious: Yes (Hospitalization)
  Sender: FDA-Public Use
  Company Number: US-TARO-2015TAR01094

PATIENT
  Age: 74 Year
  Sex: Male

DRUGS (3)
  1. PLAVIX [Concomitant]
     Active Substance: CLOPIDOGREL BISULFATE
     Dosage: UNK
     Dates: end: 201510
  2. SOLARAZE [Suspect]
     Active Substance: DICLOFENAC SODIUM
     Indication: ACTINIC KERATOSIS
     Dosage: 1 DOSAGE UNITS, 2X/DAY
     Route: 061
     Dates: start: 20150825, end: 20151119
  3. COUMADIN [Concomitant]
     Active Substance: WARFARIN SODIUM
     Dosage: UNK
     Dates: start: 201510, end: 201510

REACTIONS (5)
  - Presyncope [Recovered/Resolved]
  - Retroperitoneal haemorrhage [Recovered/Resolved]
  - Urinary retention [None]
  - Cough [None]
  - Post procedural haemorrhage [None]

NARRATIVE: CASE EVENT DATE: 20151009
